FAERS Safety Report 13748828 (Version 1)
Quarter: 2017Q3

REPORT INFORMATION
  Report Type: Spontaneous
  Country: US (occurrence: US)
  Receive Date: 20170713
  Receipt Date: 20170713
  Transmission Date: 20171127
  Serious: No
  Sender: FDA-Public Use
  Company Number: US-009507513-1706USA010650

PATIENT

DRUGS (1)
  1. JANUVIA [Suspect]
     Active Substance: SITAGLIPTIN PHOSPHATE
     Dosage: 50 MG TWICE A DAY (50 MG IN THE MORNING AND 50 MG AT NIGHT)
     Route: 048

REACTIONS (3)
  - Drug prescribing error [Unknown]
  - Drug administration error [Unknown]
  - Wrong technique in product usage process [Unknown]
